FAERS Safety Report 4618278-8 (Version None)
Quarter: 2005Q1

REPORT INFORMATION
  Report Type: 
  Country: None (occurrence: None)
  Receive Date: 20050323
  Receipt Date: 20050310
  Transmission Date: 20050727
  Serious: Yes (Death, Hospitalization)
  Sender: FDA-Public Use
  Company Number: K200500366

PATIENT
  Age: 34 Year
  Sex: Female
  Weight: 48 kg

DRUGS (3)
  1. KETALAR [Suspect]
     Indication: POISONING
     Dosage: 100 MG, ORAL
     Route: 048
     Dates: start: 20020901
  2. KETALAR [Suspect]
     Dosage: 200 MG, ORAL
     Route: 048
  3. KETALAR [Suspect]
     Dosage: 300 MG, ORAL
     Route: 048

REACTIONS (18)
  - BRAIN DEATH [None]
  - BRAIN OEDEMA [None]
  - CARDIAC FAILURE [None]
  - CARDIO-RESPIRATORY ARREST [None]
  - CARDIOMYOPATHY [None]
  - HYPERAEMIA [None]
  - HYPOXIA [None]
  - LEUKOPLAKIA [None]
  - LOSS OF CONSCIOUSNESS [None]
  - MYOCARDIAL FIBROSIS [None]
  - MYOCARDIAL INFARCTION [None]
  - POISONING [None]
  - PULMONARY CONGESTION [None]
  - PULMONARY HAEMORRHAGE [None]
  - PULMONARY OEDEMA [None]
  - PULSE ABSENT [None]
  - RESPIRATORY DEPRESSION [None]
  - VICTIM OF HOMICIDE [None]
